FAERS Safety Report 8232049-5 (Version None)
Quarter: 2012Q1

REPORT INFORMATION
  Report Type: 
  Country: None (occurrence: None)
  Receive Date: 20120323
  Receipt Date: 20120316
  Transmission Date: 20120608
  Serious: Yes (Death)
  Sender: FDA-Public Use
  Company Number: AT-VERTEX PHARMACEUTICALS INC.-000000000000000362

PATIENT
  Sex: Male
  Weight: 94 kg

DRUGS (9)
  1. UROSIN [Concomitant]
  2. DAXAS [Concomitant]
  3. FLUTICASONE PROPIONATE/SALMETEROL [Concomitant]
  4. INCIVO (TELAPREVIR) [Suspect]
     Indication: HEPATITIS C
     Dosage: DOSAGE FORM: TABLET
     Dates: start: 20120101
  5. SEROQUEL [Concomitant]
  6. SPIRIVA [Concomitant]
  7. NEBIVOLOL [Concomitant]
  8. PANTOPRAZOLE SODIUM [Concomitant]
  9. LASILACTONE [Concomitant]

REACTIONS (1)
  - MYOCARDIAL INFARCTION [None]
